FAERS Safety Report 11606134 (Version 8)
Quarter: 2016Q1

REPORT INFORMATION
  Report Type: Report from Study
  Country: US (occurrence: US)
  Receive Date: 20151007
  Receipt Date: 20160301
  Transmission Date: 20160525
  Serious: Yes (Death, Hospitalization)
  Sender: FDA-Public Use
  Company Number: US-ACTELION-A-NJ2015-124874

PATIENT
  Age: 79 Year
  Sex: Female

DRUGS (22)
  1. SPIRONOLACTONE. [Concomitant]
     Active Substance: SPIRONOLACTONE
     Dosage: 50 MG, BID
  2. SILDENAFIL. [Concomitant]
     Active Substance: SILDENAFIL
  3. VELETRI [Suspect]
     Active Substance: EPOPROSTENOL
     Indication: PULMONARY HYPERTENSION
     Dosage: 20 NG, PER MIN
     Route: 042
     Dates: start: 20140225, end: 20160101
  4. TESSALON [Concomitant]
     Active Substance: BENZONATATE
     Dosage: 100 MG, TID PRN
     Route: 048
  5. BIFIDOBACTERIUM BIFIDUM W/LACTOBACI [Concomitant]
     Dosage: UNK, QD
     Route: 048
  6. FUROSEMIDE. [Concomitant]
     Active Substance: FUROSEMIDE
     Dosage: 40 MG, UNK
     Route: 048
  7. HYDROXYZINE [Concomitant]
     Active Substance: HYDROXYZINE\HYDROXYZINE HYDROCHLORIDE
     Dosage: 25 MG, Q6HRS PRN
     Route: 048
  8. ONDANSETRON [Concomitant]
     Active Substance: ONDANSETRON
     Dosage: UNK, TID PRN
     Route: 048
  9. ADCIRCA [Concomitant]
     Active Substance: TADALAFIL
     Dosage: 40 MG, QD
     Route: 048
  10. TRACLEER [Suspect]
     Active Substance: BOSENTAN
     Indication: PULMONARY HYPERTENSION
     Dosage: 125 MG, BID
     Route: 048
     Dates: start: 20141009, end: 20160101
  11. OXYCODONE AND ACETAMINOPHEN [Concomitant]
     Active Substance: ACETAMINOPHEN\OXYCODONE HYDROCHLORIDE
     Dosage: UNK, Q6HRS PRN
  12. CALCIUM + VITAMIN D [Concomitant]
     Active Substance: CALCIUM\VITAMIN D
     Dosage: UNK, BID
     Route: 048
  13. FLUTICASONE [Concomitant]
     Active Substance: FLUTICASONE\FLUTICASONE PROPIONATE
     Dosage: 2 SPRAY, QD PRN
  14. WARFARIN [Concomitant]
     Active Substance: WARFARIN
     Dosage: 10 MG, QAM
     Route: 048
  15. HYCODAN [Concomitant]
     Active Substance: HOMATROPINE METHYLBROMIDE\HYDROCODONE BITARTRATE
     Dosage: 5 ML, Q4HRS PRN
     Route: 048
  16. NEXIUM [Concomitant]
     Active Substance: ESOMEPRAZOLE MAGNESIUM
     Dosage: 40 MG, QD
     Route: 048
  17. MULTIVITAMINS W/MINERALS [Concomitant]
     Active Substance: MINERALS\VITAMINS
  18. CHOLECALCIFEROL [Concomitant]
     Active Substance: CHOLECALCIFEROL
     Dosage: 1000 IU, QD
     Route: 048
  19. MAGNESIUM OXIDE. [Concomitant]
     Active Substance: MAGNESIUM OXIDE
     Dosage: 500 MG, QD
     Route: 048
  20. MONTELUKAST [Concomitant]
     Active Substance: MONTELUKAST SODIUM
     Dosage: 10 MG, QD
     Route: 048
  21. OXYGEN. [Concomitant]
     Active Substance: OXYGEN
     Dosage: 4 L, PER MIN
  22. UBIQUINONE [Concomitant]
     Active Substance: UBIDECARENONE

REACTIONS (16)
  - Multiple organ dysfunction syndrome [Fatal]
  - Pulmonary arterial hypertension [Fatal]
  - Ascites [Recovered/Resolved]
  - Aspiration pleural cavity [Unknown]
  - Upper gastrointestinal haemorrhage [Recovered/Resolved]
  - Haematemesis [Recovered/Resolved]
  - Diarrhoea haemorrhagic [Recovered/Resolved]
  - Malaise [Recovered/Resolved]
  - Abdominal cavity drainage [Recovered/Resolved]
  - Diarrhoea [Recovered/Resolved]
  - Disease progression [Fatal]
  - Dialysis [Unknown]
  - Dehydration [Unknown]
  - Asthenia [Unknown]
  - Faeces discoloured [Recovered/Resolved]
  - Fluid retention [Unknown]

NARRATIVE: CASE EVENT DATE: 20150914
